FAERS Safety Report 7020149-7 (Version None)
Quarter: 2010Q3

REPORT INFORMATION
  Report Type: 
  Country: None (occurrence: None)
  Receive Date: 20100929
  Receipt Date: 20100922
  Transmission Date: 20110219
  Serious: Yes (Hospitalization)
  Sender: FDA-Public Use
  Company Number: AU-NOVOPROD-315217

PATIENT
  Sex: Female

DRUGS (2)
  1. PROTAPHANE PENFILL [Suspect]
     Indication: DIABETES MELLITUS
     Dosage: UNK
  2. ACTRAPID HM PENFILL [Suspect]
     Indication: DIABETES MELLITUS
     Dosage: UNK

REACTIONS (1)
  - COMA [None]
